FAERS Safety Report 11906941 (Version 3)
Quarter: 2019Q2

REPORT INFORMATION
  Report Type: Report from Study
  Country: CA (occurrence: CA)
  Receive Date: 20160111
  Receipt Date: 20190524
  Transmission Date: 20190711
  Serious: Yes (Other)
  Sender: FDA-Public Use
  Company Number: CA-JNJFOC-20160105907

PATIENT
  Age: 49 Year
  Sex: Female

DRUGS (2)
  1. SIMPONI [Suspect]
     Active Substance: GOLIMUMAB
     Indication: ANKYLOSING SPONDYLITIS
     Route: 058
     Dates: start: 20110301, end: 201601
  2. TEMOZOLOMIDE. [Concomitant]
     Active Substance: TEMOZOLOMIDE
     Dosage: REPEAT FOR 3 MORE MONTHS
     Route: 048

REACTIONS (1)
  - Astrocytoma [Not Recovered/Not Resolved]

NARRATIVE: CASE EVENT DATE: 20160107
